FAERS Safety Report 21015508 (Version 3)
Quarter: 2022Q3

REPORT INFORMATION
  Report Type: Report from Study
  Country: RU (occurrence: RU)
  Receive Date: 20220628
  Receipt Date: 20220817
  Transmission Date: 20221027
  Serious: Yes (Death, Congenital Anomaly)
  Sender: FDA-Public Use
  Company Number: RU-NOVARTISPH-NVSC2022RU145343

PATIENT
  Sex: Female

DRUGS (3)
  1. ASCIMINIB [Suspect]
     Active Substance: ASCIMINIB
     Indication: Foetal exposure during pregnancy
     Dosage: MATERNAL EXPOSURE DURING PREGNANCY 40 MG, BID (X2/DAY)
     Route: 064
     Dates: start: 20190605, end: 20220314
  2. ACETAMINOPHEN [Concomitant]
     Active Substance: ACETAMINOPHEN
     Indication: Foetal exposure during pregnancy
     Dosage: UNK
     Route: 064
     Dates: start: 20220209, end: 20220210
  3. UMIFENOVIR [Concomitant]
     Active Substance: UMIFENOVIR
     Indication: Foetal exposure during pregnancy
     Dosage: UNK
     Route: 064
     Dates: start: 20220211, end: 20220215

REACTIONS (2)
  - Generalised oedema [Fatal]
  - Foetal exposure during pregnancy [Unknown]

NARRATIVE: CASE EVENT DATE: 20220516
